FAERS Safety Report 19416235 (Version 1)
Quarter: 2021Q2

REPORT INFORMATION
  Report Type: Spontaneous
  Country: US (occurrence: US)
  Receive Date: 20210615
  Receipt Date: 20210615
  Transmission Date: 20210717
  Serious: No
  Sender: FDA-Public Use
  Company Number: US-ALLERGAN-2049827US

PATIENT
  Age: 31 Year
  Sex: Female

DRUGS (1)
  1. KYBELLA [Suspect]
     Active Substance: DEOXYCHOLIC ACID
     Indication: FAT TISSUE INCREASED
     Dosage: UNK UNK, SINGLE
     Route: 058
     Dates: start: 20201210, end: 20201210

REACTIONS (10)
  - Myalgia [Recovering/Resolving]
  - Facial discomfort [Recovering/Resolving]
  - Facial paresis [Recovering/Resolving]
  - Injection site mass [Recovering/Resolving]
  - Muscle tightness [Recovering/Resolving]
  - Wrong technique in product usage process [Unknown]
  - Swelling [Recovered/Resolved]
  - VIIth nerve injury [Recovering/Resolving]
  - Burning sensation [Recovering/Resolving]
  - Hypoaesthesia [Recovered/Resolved]

NARRATIVE: CASE EVENT DATE: 20201210
